FAERS Safety Report 9950556 (Version 1)
Quarter: 2014Q1

REPORT INFORMATION
  Report Type: Report from Study
  Country: US (occurrence: US)
  Receive Date: 20140304
  Receipt Date: 20140304
  Transmission Date: 20141002
  Serious: No
  Sender: FDA-Public Use
  Company Number: US-ABBVIE-13P-163-1072118-00

PATIENT
  Age: 48 Year
  Sex: Female

DRUGS (8)
  1. HUMIRA [Suspect]
     Indication: CROHN^S DISEASE
     Dates: start: 201211
  2. DEXILANT [Concomitant]
     Indication: GASTRIC DISORDER
     Dosage: DAILY
  3. GENERIC ARICEPT [Concomitant]
     Indication: MEMORY IMPAIRMENT
     Dosage: DAILY
  4. PRISTIQ [Concomitant]
     Indication: DEPRESSION
  5. LIPITOR [Concomitant]
     Indication: CARDIAC DISORDER
     Dosage: DAILY
  6. QUASENSE [Concomitant]
     Indication: CONTRACEPTION
  7. XANAX [Concomitant]
     Indication: ANXIETY
  8. XANAX [Concomitant]
     Indication: PANIC DISORDER

REACTIONS (1)
  - Gastric ulcer [Not Recovered/Not Resolved]
